FAERS Safety Report 12892832 (Version 2)
Quarter: 2017Q1

REPORT INFORMATION
  Report Type: Spontaneous
  Country: US (occurrence: US)
  Receive Date: 20161028
  Receipt Date: 20170216
  Transmission Date: 20170428
  Serious: No
  Sender: FDA-Public Use
  Company Number: US-REGENERON PHARMACEUTICALS, INC.-2016-22991

PATIENT

DRUGS (2)
  1. EYLEA [Suspect]
     Active Substance: AFLIBERCEPT
     Indication: NEOVASCULAR AGE-RELATED MACULAR DEGENERATION
     Dosage: RIGHT EYE, AS NECESSARY
     Route: 031
     Dates: start: 20130101
  2. EYLEA [Suspect]
     Active Substance: AFLIBERCEPT
     Dosage: SINGLE, RIGHT EYE
     Route: 031
     Dates: start: 20161017, end: 20161017

REACTIONS (2)
  - Anxiety [Recovered/Resolved]
  - Drug dose omission [Recovered/Resolved]

NARRATIVE: CASE EVENT DATE: 20161017
